FAERS Safety Report 9528270 (Version 1)
Quarter: 2013Q3

REPORT INFORMATION
  Report Type: Report from Study
  Country: NL (occurrence: NL)
  Receive Date: 20130917
  Receipt Date: 20130917
  Transmission Date: 20140515
  Serious: Yes (Other)
  Sender: FDA-Public Use
  Company Number: PHHY2013NL101755

PATIENT
  Age: 66 Year
  Sex: Female

DRUGS (4)
  1. ZOMETA [Suspect]
     Indication: BREAST CANCER METASTATIC
     Dosage: 4 MG, ONCE PER 4 WEEKS
     Route: 042
  2. ZOMETA [Suspect]
     Dosage: 4 MG, ONCE PER 4 WEEKS
     Route: 042
     Dates: start: 20130225
  3. ZOMETA [Suspect]
     Dosage: 4 MG, ONCE PER 4 WEEKS
     Route: 042
     Dates: start: 20130815
  4. ZOMETA [Suspect]
     Dosage: 4 MG, ONCE PER 4 WEEKS
     Route: 042
     Dates: start: 20130912

REACTIONS (1)
  - Paresis [Not Recovered/Not Resolved]
